FAERS Safety Report 4572299-2 (Version None)
Quarter: 2005Q1

REPORT INFORMATION
  Report Type: 
  Country: None (occurrence: None)
  Receive Date: 20050203
  Receipt Date: 20020205
  Transmission Date: 20050727
  Serious: Yes (Death)
  Sender: FDA-Public Use
  Company Number: 2002GB00290

PATIENT
  Age: 63 Year
  Sex: Female

DRUGS (7)
  1. PROPOFOL [Suspect]
     Indication: ANAESTHESIA
     Dosage: 150 MG DAILY IV
     Route: 042
     Dates: start: 20000701
  2. FENTANYL CITRATE [Suspect]
     Indication: ANAESTHESIA
     Dosage: 0.3 MG DAILY IV
     Route: 042
     Dates: start: 20000701
  3. MIDAZOLAM HCL [Concomitant]
  4. PANCURONIUM [Concomitant]
  5. SOTALOL HCL [Concomitant]
  6. PERINDOPRIL [Concomitant]
  7. LEVOTHYROXINE SODIUM [Concomitant]

REACTIONS (11)
  - ANAPHYLACTIC REACTION [None]
  - BLOOD IMMUNOGLOBULIN E ABNORMAL [None]
  - CARDIAC ARREST [None]
  - CARDIOMEGALY [None]
  - CORONARY ARTERY ATHEROSCLEROSIS [None]
  - ELECTROCARDIOGRAM QRS COMPLEX PROLONGED [None]
  - ELECTROCARDIOGRAM ST SEGMENT ELEVATION [None]
  - ELECTROMECHANICAL DISSOCIATION [None]
  - HEART RATE DECREASED [None]
  - OXYGEN SATURATION DECREASED [None]
  - PULSE ABSENT [None]
